FAERS Safety Report 18151415 (Version 1)
Quarter: 2020Q3

REPORT INFORMATION
  Report Type: Spontaneous
  Country: US (occurrence: US)
  Receive Date: 20200814
  Receipt Date: 20200814
  Transmission Date: 20201103
  Serious: Yes (Death, Hospitalization)
  Sender: FDA-Public Use
  Company Number: US-VELOXIS PHARMACEUTICALS-2020VELUS-000726

PATIENT
  Sex: Male
  Weight: 13.61 kg

DRUGS (3)
  1. ENVARSUS XR [Suspect]
     Active Substance: TACROLIMUS
     Dosage: 6 MILLIGRAM, QD (STRENGTH 1 MG)
     Route: 065
     Dates: start: 201911
  2. LASIX [Concomitant]
     Active Substance: FUROSEMIDE
     Indication: PRODUCT USED FOR UNKNOWN INDICATION
  3. ENVARSUS XR [Suspect]
     Active Substance: TACROLIMUS
     Indication: PRODUCT USED FOR UNKNOWN INDICATION
     Dosage: 6 MILLIGRAM, QD (STRENGTH 4 MG)
     Route: 065
     Dates: start: 201911

REACTIONS (5)
  - Disease progression [Fatal]
  - Weight increased [Unknown]
  - Fluid retention [Unknown]
  - Diarrhoea [Unknown]
  - Vision blurred [Unknown]
